FAERS Safety Report 15905483 (Version 1)
Quarter: 2019Q1

REPORT INFORMATION
  Report Type: Spontaneous
  Country: SI (occurrence: SI)
  Receive Date: 20190204
  Receipt Date: 20190204
  Transmission Date: 20190417
  Serious: Yes (Hospitalization, Other)
  Sender: FDA-Public Use
  Company Number: SI-ACCORD-104338

PATIENT
  Sex: Male

DRUGS (12)
  1. ALLOPURINOL. [Suspect]
     Active Substance: ALLOPURINOL
     Indication: PRODUCT USED FOR UNKNOWN INDICATION
     Route: 065
  2. IROPREM [Suspect]
     Active Substance: DEXTRIFERRON
     Indication: PRODUCT USED FOR UNKNOWN INDICATION
     Dosage: UNK
     Route: 065
  3. LEVOSIMENDAN [Suspect]
     Active Substance: LEVOSIMENDAN
     Indication: PRODUCT USED FOR UNKNOWN INDICATION
     Dosage: PER 4 WEEKS
     Route: 065
  4. PLIVIT D3 [Suspect]
     Active Substance: CHOLECALCIFEROL
     Indication: PRODUCT USED FOR UNKNOWN INDICATION
     Dosage: GTT
     Route: 065
  5. ENTRESTO [Suspect]
     Active Substance: SACUBITRIL\VALSARTAN
     Indication: PRODUCT USED FOR UNKNOWN INDICATION
     Dosage: 50 MG, UNK
     Route: 065
  6. PRAVASTATIN. [Suspect]
     Active Substance: PRAVASTATIN
     Indication: PRODUCT USED FOR UNKNOWN INDICATION
     Route: 065
  7. EPOETIN ALFA [Suspect]
     Active Substance: ERYTHROPOIETIN
     Indication: PRODUCT USED FOR UNKNOWN INDICATION
     Dosage: 500 IU, QW
     Route: 058
  8. ALDACTONE [Suspect]
     Active Substance: SPIRONOLACTONE
     Indication: PRODUCT USED FOR UNKNOWN INDICATION
     Route: 065
  9. EUTHYROX [Suspect]
     Active Substance: LEVOTHYROXINE SODIUM
     Indication: PRODUCT USED FOR UNKNOWN INDICATION
     Route: 065
  10. PANTOPRAZOLE [Suspect]
     Active Substance: PANTOPRAZOLE
     Indication: PRODUCT USED FOR UNKNOWN INDICATION
     Route: 065
  11. MAREVAN [Suspect]
     Active Substance: WARFARIN SODIUM
     Indication: PRODUCT USED FOR UNKNOWN INDICATION
     Route: 065
  12. EDEMID [Suspect]
     Active Substance: FUROSEMIDE
     Indication: PRODUCT USED FOR UNKNOWN INDICATION
     Dosage: 2 DF, UNK
     Route: 065

REACTIONS (18)
  - Cyanosis [Recovering/Resolving]
  - Pulmonary hypertension [Unknown]
  - Myocardial infarction [Unknown]
  - Left ventricular hypertrophy [Unknown]
  - Upper gastrointestinal haemorrhage [Unknown]
  - Respiratory failure [Unknown]
  - Ejection fraction decreased [Unknown]
  - Nephrogenic anaemia [Recovering/Resolving]
  - Cardiac failure [Unknown]
  - Respiratory tract infection viral [Unknown]
  - Blood pressure abnormal [Unknown]
  - Tricuspid valve incompetence [Unknown]
  - Dyspnoea exertional [Recovering/Resolving]
  - Myocardial ischaemia [Unknown]
  - Oedema [Unknown]
  - Peripheral swelling [Recovering/Resolving]
  - Dependence on oxygen therapy [Unknown]
  - Jugular vein distension [Recovering/Resolving]

NARRATIVE: CASE EVENT DATE: 201707
